FAERS Safety Report 22121107 (Version 1)
Quarter: 2023Q1

REPORT INFORMATION
  Report Type: Spontaneous
  Country: US (occurrence: None)
  Receive Date: 20230321
  Receipt Date: 20230321
  Transmission Date: 20230417
  Serious: Yes (Death)
  Sender: FDA-Public Use
  Company Number: None

PATIENT
  Age: 59 Year
  Sex: Female

DRUGS (1)
  1. OCTREOTIDE [Suspect]
     Active Substance: OCTREOTIDE
     Indication: Hepatitis B
     Dosage: 100MCG ONCE EVERY 8 HOURS SUBCUTANEOUS?
     Route: 058
     Dates: start: 202212

REACTIONS (1)
  - Death [None]

NARRATIVE: CASE EVENT DATE: 20230208
